FAERS Safety Report 4708969-2 (Version None)
Quarter: 2005Q3

REPORT INFORMATION
  Report Type: 
  Country: None (occurrence: None)
  Receive Date: 20050705
  Receipt Date: 20050622
  Transmission Date: 20060218
  Serious: Yes (Other)
  Sender: FDA-Public Use
  Company Number: 2005092446

PATIENT
  Age: 25 Year
  Sex: Male

DRUGS (3)
  1. AZITHROMYCIN [Suspect]
     Indication: CHLAMYDIAL INFECTION
     Dosage: 1 GRAM, ORAL
     Route: 048
     Dates: start: 20050531
  2. IBUPROFEN [Concomitant]
  3. GAVISCON [Concomitant]

REACTIONS (1)
  - ANOSMIA [None]
